FAERS Safety Report 9469910 (Version 2)
Quarter: 2013Q3

REPORT INFORMATION
  Report Type: Spontaneous
  Country: JP (occurrence: JP)
  Receive Date: 20130822
  Receipt Date: 20130822
  Transmission Date: 20140515
  Serious: Yes (Other)
  Sender: FDA-Public Use
  Company Number: JP-RANBAXY-2006US-01869

PATIENT
  Age: 29 Year
  Sex: Female

DRUGS (2)
  1. VALACICLOVIR [Suspect]
     Indication: HERPES ZOSTER
     Dosage: 3000MG/DAY
     Route: 048
  2. GANCICLOVIR [Interacting]
     Indication: CYTOMEGALOVIRUS GASTROENTERITIS
     Dosage: 10 MG/KG/DAY
     Route: 042

REACTIONS (3)
  - Herpes zoster [Recovered/Resolved]
  - Granulocytopenia [Unknown]
  - Drug interaction [Unknown]
